FAERS Safety Report 17393306 (Version 2)
Quarter: 2020Q1

REPORT INFORMATION
  Report Type: Spontaneous
  Country: US (occurrence: US)
  Receive Date: 20200207
  Receipt Date: 20200217
  Transmission Date: 20200409
  Serious: No
  Sender: FDA-Public Use
  Company Number: US-MYLANLABS-2020M1011840

PATIENT
  Sex: Male

DRUGS (1)
  1. YUPELRI [Suspect]
     Active Substance: REVEFENACIN
     Indication: PRODUCT USED FOR UNKNOWN INDICATION
     Dosage: 175/3 MICROGRAM PER MILLILITRE, QD

REACTIONS (3)
  - Liquid product physical issue [Unknown]
  - Therapeutic product effect decreased [Unknown]
  - Dyspnoea [Recovered/Resolved]
